FAERS Safety Report 10370800 (Version 1)
Quarter: 2014Q3

REPORT INFORMATION
  Report Type: Spontaneous
  Country: US (occurrence: None)
  Receive Date: 20140807
  Receipt Date: 20140807
  Transmission Date: 20150326
  Serious: Yes (Life-Threatening, Hospitalization)
  Sender: FDA-Public Use
  Company Number: None

PATIENT
  Age: 30 Year
  Sex: Female
  Weight: 97.9 kg

DRUGS (10)
  1. INVOKANA [Suspect]
     Active Substance: CANAGLIFLOZIN
     Indication: TYPE 2 DIABETES MELLITUS
     Route: 048
  2. LOSARTAN (COZAAR) [Concomitant]
  3. FEXOFENADINE-PSEUDOEPHEDRINE (ALLEGRA-D 24 HOUR) [Concomitant]
  4. GABAPENTIN (NEURONTIN) [Concomitant]
  5. OMEPRAZOLE (PRILOSEC) [Concomitant]
  6. ONDANSETRON (ZOFRAN ODT) [Concomitant]
  7. GEMFIBROZIL (LOPID) [Concomitant]
  8. SIMVASTATIN (ZOCOR) [Concomitant]
  9. SUCRALFATE (CARAFATE) [Concomitant]
  10. SULFAMETHOXAZOLE-TRIMETHOPRIM (BACTRIM DS) [Concomitant]

REACTIONS (1)
  - Diabetic ketoacidosis [None]

NARRATIVE: CASE EVENT DATE: 20140802
